FAERS Safety Report 25202174 (Version 5)
Quarter: 2025Q2

REPORT INFORMATION
  Report Type: Report from Study
  Country: US (occurrence: US)
  Receive Date: 20250416
  Receipt Date: 20250618
  Transmission Date: 20250716
  Serious: Yes (Other)
  Sender: SUNOVION
  Company Number: US-SUMITOMO PHARMA SWITZERLAND GMBH-2025SPA004079

PATIENT

DRUGS (16)
  1. ORGOVYX [Suspect]
     Active Substance: RELUGOLIX
     Indication: Prostate cancer
     Dosage: 360 MG, SINGLE
     Route: 048
     Dates: start: 202307, end: 202307
  2. ORGOVYX [Suspect]
     Active Substance: RELUGOLIX
     Dosage: 120 MG, QD
     Route: 048
     Dates: start: 202307
  3. NUBEQA [Suspect]
     Active Substance: DAROLUTAMIDE
     Indication: Product used for unknown indication
     Route: 065
  4. ALPHAGAN P [Concomitant]
     Active Substance: BRIMONIDINE TARTRATE
     Route: 047
  5. LEVOTHYROXINE [Concomitant]
     Active Substance: LEVOTHYROXINE
     Route: 065
  6. MEMANTINE [Concomitant]
     Active Substance: MEMANTINE
     Route: 065
  7. Juice plus essentials fruit blend [Concomitant]
     Route: 065
  8. Juice plus essentials vegetable blend [Concomitant]
     Route: 065
  9. FERROUS SULFATE [Concomitant]
     Active Substance: FERROUS SULFATE
     Route: 065
  10. HERBALS\SAW PALMETTO [Concomitant]
     Active Substance: HERBALS\SAW PALMETTO
     Route: 065
  11. BIOTIN [Concomitant]
     Active Substance: BIOTIN
     Route: 065
  12. VITAMIN D3 [Concomitant]
     Active Substance: CHOLECALCIFEROL
     Route: 065
  13. VITAMINS [Concomitant]
     Active Substance: VITAMINS
     Route: 065
  14. DONEPEZIL [Concomitant]
     Active Substance: DONEPEZIL
     Route: 065
  15. ATORVASTATIN [Concomitant]
     Active Substance: ATORVASTATIN
     Route: 065
  16. Potassium ER [Concomitant]
     Route: 065

REACTIONS (4)
  - Dementia [Not Recovered/Not Resolved]
  - Hot flush [Not Recovered/Not Resolved]
  - Back pain [Unknown]
  - Product dose omission issue [Unknown]
